FAERS Safety Report 4460246-3 (Version None)
Quarter: 2004Q3

REPORT INFORMATION
  Report Type: 
  Country: None (occurrence: None)
  Receive Date: 20040928
  Receipt Date: 20040206
  Transmission Date: 20050211
  Serious: No
  Sender: FDA-Public Use
  Company Number: US-GLAXOSMITHKLINE-A0497875A

PATIENT

DRUGS (8)
  1. SEREVENT [Suspect]
     Indication: ASTHMA
     Route: 055
  2. ADVAIR DISKUS 100/50 [Suspect]
     Indication: ASTHMA
     Route: 055
  3. FORADIL [Suspect]
     Route: 065
  4. PREDNISONE [Suspect]
     Route: 065
  5. FLOVENT [Suspect]
     Route: 065
  6. COMBIVENT [Suspect]
     Route: 065
  7. SINGULAIR [Suspect]
     Route: 065
  8. UNKNOWN MEDICATION [Concomitant]
     Route: 065

REACTIONS (5)
  - ASTHMA [None]
  - CEREBROVASCULAR ACCIDENT [None]
  - DRUG INEFFECTIVE [None]
  - HYPOAESTHESIA [None]
  - PALPITATIONS [None]
